FAERS Safety Report 4375962-1 (Version None)
Quarter: 2004Q2

REPORT INFORMATION
  Report Type: 
  Country: None (occurrence: None)
  Receive Date: 20040609
  Receipt Date: 20040609
  Transmission Date: 20050107
  Serious: Yes (Other)
  Sender: FDA-Public Use
  Company Number: None

PATIENT
  Age: 60 Year
  Sex: Male

DRUGS (1)
  1. ONTAK [Suspect]
     Indication: RENAL CELL CARCINOMA STAGE IV
     Dosage: 1906 MCG ONCE IV
     Route: 042
     Dates: start: 20040503, end: 20040503

REACTIONS (4)
  - CELLULITIS [None]
  - EXTRAVASATION [None]
  - INFUSION SITE REACTION [None]
  - RASH [None]
